FAERS Safety Report 19313059 (Version 1)
Quarter: 2021Q2

REPORT INFORMATION
  Report Type: Spontaneous
  Country: US (occurrence: US)
  Receive Date: 20210526
  Receipt Date: 20210526
  Transmission Date: 20210717
  Serious: No
  Sender: FDA-Public Use
  Company Number: None

PATIENT
  Age: 53 Year
  Sex: Female
  Weight: 57.15 kg

DRUGS (9)
  1. ELDERBERRY [Concomitant]
     Active Substance: HERBALS
  2. VITAMIN C [Concomitant]
     Active Substance: ASCORBIC ACID
  3. LEVOCETIRIZINE [Suspect]
     Active Substance: LEVOCETIRIZINE
     Indication: MULTIPLE ALLERGIES
     Dosage: ?          QUANTITY:30 TABLET(S);?
     Route: 048
  4. ATIVAN [Concomitant]
     Active Substance: LORAZEPAM
  5. ZINC. [Concomitant]
     Active Substance: ZINC
  6. STOOL SOFTENER (DOCUSATE) [Concomitant]
     Active Substance: DOCUSATE
  7. VITAMIN D [Concomitant]
     Active Substance: VITAMIN D NOS
  8. CLONAZEPAM. [Suspect]
     Active Substance: CLONAZEPAM
     Indication: ANXIETY
     Dosage: ?          QUANTITY:30 TABLET(S);OTHER FREQUENCY:TWICE DAY AS NEEDE;?
     Route: 048
  9. MECLIZINE [Concomitant]
     Active Substance: MECLIZINE HYDROCHLORIDE

REACTIONS (2)
  - Anger [None]
  - Depression [None]

NARRATIVE: CASE EVENT DATE: 20210513
